FAERS Safety Report 25279409 (Version 1)
Quarter: 2025Q2

REPORT INFORMATION
  Report Type: Spontaneous
  Country: CN (occurrence: CN)
  Receive Date: 20250507
  Receipt Date: 20250507
  Transmission Date: 20250717
  Serious: Yes (Other)
  Sender: PFIZER
  Company Number: CN-PFIZER INC-PV202500052855

PATIENT
  Age: 68 Year
  Sex: Male
  Weight: 56 kg

DRUGS (1)
  1. CYTARABINE [Suspect]
     Active Substance: CYTARABINE
     Indication: Acute myeloid leukaemia
     Dosage: 0.1 G, 2X/DAY
     Route: 041
     Dates: start: 20250421, end: 20250427

REACTIONS (2)
  - Hyperpyrexia [Recovered/Resolved]
  - Cytarabine syndrome [Recovered/Resolved]

NARRATIVE: CASE EVENT DATE: 20250424
